FAERS Safety Report 6871951-3 (Version None)
Quarter: 2010Q3

REPORT INFORMATION
  Report Type: 
  Country: None (occurrence: None)
  Receive Date: 20100723
  Receipt Date: 20100713
  Transmission Date: 20110219
  Serious: Yes (Hospitalization, Other)
  Sender: FDA-Public Use
  Company Number: US-PFIZER INC-2009316429

PATIENT
  Sex: Female

DRUGS (5)
  1. CHANTIX [Suspect]
     Indication: SMOKING CESSATION THERAPY
     Dosage: UNK
     Route: 048
     Dates: start: 20071212, end: 20080104
  2. TYLENOL [Concomitant]
     Indication: HERNIA REPAIR
     Dosage: UNK
     Dates: start: 20070101, end: 20090101
  3. TYLENOL [Concomitant]
     Indication: TOOTH DISORDER
  4. DARVOCET [Concomitant]
     Indication: HERNIA REPAIR
     Dosage: UNK
     Dates: start: 20070101, end: 20090101
  5. DARVOCET [Concomitant]
     Indication: TOOTH DISORDER

REACTIONS (4)
  - ANXIETY [None]
  - DEPRESSION [None]
  - INTENTIONAL OVERDOSE [None]
  - SUICIDE ATTEMPT [None]
